FAERS Safety Report 9994802 (Version 1)
Quarter: 2014Q1

REPORT INFORMATION
  Report Type: Spontaneous
  Country: US (occurrence: None)
  Receive Date: 20140307
  Receipt Date: 20140307
  Transmission Date: 20141002
  Serious: Yes (Disabling)
  Sender: FDA-Public Use
  Company Number: None

PATIENT
  Age: 20 Year
  Sex: Female
  Weight: 54.43 kg

DRUGS (1)
  1. JUNEL FE MG-20 [Suspect]
     Indication: CONTRACEPTION
     Dosage: 28  ONCE DAILY
     Route: 048
     Dates: start: 20130906, end: 20140306

REACTIONS (2)
  - Fibroadenoma of breast [None]
  - Neoplasm malignant [None]
